FAERS Safety Report 12873469 (Version 1)
Quarter: 2016Q4

REPORT INFORMATION
  Report Type: Spontaneous
  Country: DE (occurrence: DE)
  Receive Date: 20161021
  Receipt Date: 20161021
  Transmission Date: 20170207
  Serious: Yes (Hospitalization, Other)
  Sender: FDA-Public Use
  Company Number: DE-GILEAD-2016-0238221

PATIENT
  Sex: Female

DRUGS (1)
  1. SOFOSBUVIR [Suspect]
     Active Substance: SOFOSBUVIR
     Indication: HEPATITIS C
     Dosage: UNK
     Route: 065

REACTIONS (3)
  - Drug ineffective [Not Recovered/Not Resolved]
  - Mental disorder [Unknown]
  - Hepatitis C virus test positive [Not Recovered/Not Resolved]
